FAERS Safety Report 13320540 (Version 1)
Quarter: 2017Q1

REPORT INFORMATION
  Report Type: Spontaneous
  Country: US (occurrence: US)
  Receive Date: 20170310
  Receipt Date: 20170310
  Transmission Date: 20170428
  Serious: Yes (Hospitalization)
  Sender: FDA-Public Use
  Company Number: None

PATIENT
  Age: 81 Year
  Sex: Female
  Weight: 68.1 kg

DRUGS (6)
  1. VITAFUSION WOMEN^S MULTIVITAMIN [Concomitant]
  2. VITAMIN D3 [Concomitant]
     Active Substance: CHOLECALCIFEROL
  3. LEVOTHYROXINE. [Concomitant]
     Active Substance: LEVOTHYROXINE
  4. CYCLOBBENZAPRINE [Suspect]
     Active Substance: CYCLOBENZAPRINE
     Indication: BACK PAIN
     Dosage: 1 PILL AT BEDTIME
     Route: 048
     Dates: start: 20170202, end: 20170202
  5. HYDROCHLOROTHIAZIDE. [Concomitant]
     Active Substance: HYDROCHLOROTHIAZIDE
  6. BIOTIN W VIT C + E [Concomitant]

REACTIONS (2)
  - Loss of consciousness [None]
  - Blood pressure decreased [None]

NARRATIVE: CASE EVENT DATE: 20170202
